FAERS Safety Report 19254530 (Version 1)
Quarter: 2021Q2

REPORT INFORMATION
  Report Type: Spontaneous
  Country: FR (occurrence: FR)
  Receive Date: 20210513
  Receipt Date: 20210513
  Transmission Date: 20210717
  Serious: Yes (Hospitalization)
  Sender: FDA-Public Use
  Company Number: NVSC2021FR102759

PATIENT
  Age: 86 Year
  Sex: Female
  Weight: 63 kg

DRUGS (2)
  1. AZARGA [Suspect]
     Active Substance: BRINZOLAMIDE\TIMOLOL MALEATE
     Indication: OCULAR HYPERTENSION
     Dosage: 2 DF, QD (1 GOUTTE X 2 PAR JOUR)
     Route: 047
     Dates: start: 20210312
  2. DIAMOX SEQUELS [Suspect]
     Active Substance: ACETAZOLAMIDE
     Indication: OCULAR HYPERTENSION
     Dosage: 500 MG, QD (250 MG X 2 PAR JOUR)
     Route: 048
     Dates: start: 20210312, end: 20210414

REACTIONS (2)
  - Hypernatraemia [Recovered/Resolved]
  - Hypocalcaemia [Recovered/Resolved]

NARRATIVE: CASE EVENT DATE: 20210413
